FAERS Safety Report 7057382-4 (Version None)
Quarter: 2010Q4

REPORT INFORMATION
  Report Type: 
  Country: None (occurrence: None)
  Receive Date: 20101022
  Receipt Date: 20101014
  Transmission Date: 20110411
  Serious: Yes (Other)
  Sender: FDA-Public Use
  Company Number: CN-GENZYME-THYM-1001940

PATIENT
  Age: 4 Year
  Sex: Male

DRUGS (2)
  1. THYMOGLOBULIN [Suspect]
     Indication: APLASTIC ANAEMIA
     Dosage: UNK
  2. CYCLOSPORINE [Concomitant]
     Indication: APLASTIC ANAEMIA

REACTIONS (1)
  - HAEMORRHAGE INTRACRANIAL [None]
